FAERS Safety Report 6637912-4 (Version None)
Quarter: 2010Q1

REPORT INFORMATION
  Report Type: 
  Country: None (occurrence: None)
  Receive Date: 20100317
  Receipt Date: 20100305
  Transmission Date: 20100710
  Serious: Yes (Other)
  Sender: FDA-Public Use
  Company Number: PHHY2010BR13895

PATIENT
  Age: 50 Year
  Sex: Male

DRUGS (2)
  1. GALVUS MET [Suspect]
     Dosage: 1 TABLET IN MORNING AND NIGHT
  2. INSULIN [Concomitant]
     Dosage: BID

REACTIONS (7)
  - BLOOD GLUCOSE INCREASED [None]
  - DIARRHOEA [None]
  - DRUG INEFFECTIVE [None]
  - GLYCOSYLATED HAEMOGLOBIN INCREASED [None]
  - HYPERSENSITIVITY [None]
  - NAUSEA [None]
  - RASH PAPULAR [None]
